FAERS Safety Report 11375388 (Version 1)
Quarter: 2015Q3

REPORT INFORMATION
  Report Type: Spontaneous
  Country: CN (occurrence: CN)
  Receive Date: 20150813
  Receipt Date: 20150813
  Transmission Date: 20151125
  Serious: Yes (Hospitalization, Other)
  Sender: FDA-Public Use
  Company Number: CN-BAYER-2015-392130

PATIENT
  Sex: Male

DRUGS (5)
  1. GLUCOBAY [Suspect]
     Active Substance: ACARBOSE
     Dosage: UNK UNK, QD
     Dates: start: 2009
  2. INSULIN [Concomitant]
     Active Substance: INSULIN NOS
     Dosage: UNK
  3. GLUCOBAY [Suspect]
     Active Substance: ACARBOSE
     Dosage: 2 DF, TID
  4. GLUCOBAY [Suspect]
     Active Substance: ACARBOSE
     Dosage: 2 DF, TID
  5. GLUCOBAY [Suspect]
     Active Substance: ACARBOSE
     Dosage: 3 DF, TID

REACTIONS (5)
  - Visual impairment [None]
  - Vision blurred [None]
  - Hyperglycaemia [None]
  - Retinal haemorrhage [None]
  - Ocular hyperaemia [None]

NARRATIVE: CASE EVENT DATE: 2010
